FAERS Safety Report 24830470 (Version 1)
Quarter: 2025Q1

REPORT INFORMATION
  Report Type: Spontaneous
  Country: US (occurrence: US)
  Receive Date: 20250110
  Receipt Date: 20250110
  Transmission Date: 20250408
  Serious: No
  Sender: PFIZER
  Company Number: US-PFIZER INC-PV202300088008

PATIENT
  Age: 82 Year
  Sex: Male
  Weight: 79.38 kg

DRUGS (1)
  1. TIKOSYN [Suspect]
     Active Substance: DOFETILIDE
     Indication: Atrial fibrillation
     Dosage: 0.125 MG, 2X/DAY
     Route: 048

REACTIONS (1)
  - Pharyngeal disorder [Unknown]
